FAERS Safety Report 5794873-8 (Version None)
Quarter: 2008Q2

REPORT INFORMATION
  Report Type: 
  Country: None (occurrence: None)
  Receive Date: 20080630
  Receipt Date: 20080624
  Transmission Date: 20081010
  Serious: Yes (Other)
  Sender: FDA-Public Use
  Company Number: JP-BAYER-200810768BYL

PATIENT
  Age: 72 Year
  Sex: Male
  Weight: 63 kg

DRUGS (6)
  1. ASPIRIN [Suspect]
     Indication: ANTIPLATELET THERAPY
     Dosage: TOTAL DAILY DOSE: 100 MG  UNIT DOSE: 100 MG
     Route: 048
     Dates: start: 20080116, end: 20080514
  2. NORVASC [Concomitant]
     Indication: BLOOD PRESSURE DECREASED
     Dosage: TOTAL DAILY DOSE: 5 MG
     Route: 048
     Dates: start: 20050825
  3. NU-LOTAN [Concomitant]
     Indication: BLOOD PRESSURE DECREASED
     Dosage: TOTAL DAILY DOSE: 50 MG
     Route: 048
     Dates: start: 20050825
  4. FAMOTIDINE [Concomitant]
     Indication: PROPHYLAXIS AGAINST GASTROINTESTINAL ULCER
     Dosage: TOTAL DAILY DOSE: 20 MG
     Route: 048
     Dates: start: 20060517
  5. ITOROL [Concomitant]
     Indication: MYOCARDIAL INFARCTION
     Dosage: TOTAL DAILY DOSE: 40 MG
     Route: 048
     Dates: start: 20060514
  6. BUFFERIN [Concomitant]
     Indication: ANTIPLATELET THERAPY
     Dosage: TOTAL DAILY DOSE: 81 MG  UNIT DOSE: 81 MG
     Route: 048
     Dates: start: 20050825, end: 20080115

REACTIONS (1)
  - RETINAL HAEMORRHAGE [None]
